FAERS Safety Report 9267542 (Version 1)
Quarter: 2013Q2

REPORT INFORMATION
  Report Type: Spontaneous
  Country: JP (occurrence: JP)
  Receive Date: 20130502
  Receipt Date: 20130502
  Transmission Date: 20140414
  Serious: Yes (Other)
  Sender: FDA-Public Use
  Company Number: JP-GLAXOSMITHKLINE-B0878899A

PATIENT
  Age: 38 Year
  Sex: Female

DRUGS (6)
  1. PAXIL CR [Suspect]
     Indication: PSYCHOMOTOR RETARDATION
     Route: 048
     Dates: start: 20121129, end: 20121220
  2. PAXIL CR [Suspect]
     Indication: PSYCHOMOTOR RETARDATION
     Dosage: 25MG PER DAY
     Route: 048
     Dates: start: 20121221, end: 20130116
  3. PAXIL CR [Suspect]
     Indication: PSYCHOMOTOR RETARDATION
     Route: 048
     Dates: start: 20130117, end: 20130207
  4. PAXIL CR [Suspect]
     Indication: PSYCHOMOTOR RETARDATION
     Dosage: 25MG TWICE PER DAY
     Route: 048
     Dates: start: 20130208, end: 20130224
  5. LAMICTAL [Concomitant]
     Indication: MOOD SWINGS
     Dosage: 25MG TWICE PER DAY
     Route: 048
     Dates: start: 20110827
  6. QUETIAPINE FUMARATE [Concomitant]
     Indication: RESTLESSNESS
     Dosage: 125MG TWICE PER DAY
     Route: 048
     Dates: start: 20111217

REACTIONS (4)
  - Intentional self-injury [Recovered/Resolved]
  - Dissociative amnesia [Unknown]
  - Impulsive behaviour [Recovered/Resolved]
  - Aggression [Unknown]
